FAERS Safety Report 6035437-0 (Version None)
Quarter: 2009Q1

REPORT INFORMATION
  Report Type: 
  Country: None (occurrence: None)
  Receive Date: 20090112
  Receipt Date: 20090112
  Transmission Date: 20090719
  Serious: No
  Sender: FDA-Public Use
  Company Number: None

PATIENT
  Age: 51 Year
  Sex: Male
  Weight: 92.9874 kg

DRUGS (1)
  1. ALBUTEROL SULF SYP 2MG KROGER PHARMACY [Suspect]
     Indication: BRONCHITIS
     Dosage: 1 TEASPOON 3X DAILY PO ONLY 1 DOSE TAKEN
     Route: 048
     Dates: start: 20090107

REACTIONS (3)
  - DYSKINESIA [None]
  - HEART RATE INCREASED [None]
  - TREMOR [None]
